FAERS Safety Report 9094649 (Version 1)
Quarter: 2013Q1

REPORT INFORMATION
  Report Type: Spontaneous
  Country: US (occurrence: US)
  Receive Date: 20130204
  Receipt Date: 20130204
  Transmission Date: 20140127
  Serious: Yes (Hospitalization, Other)
  Sender: FDA-Public Use
  Company Number: US-RB-049296-13

PATIENT
  Age: 79 Year
  Sex: Male

DRUGS (4)
  1. SUBOXONE TABLET [Suspect]
     Indication: DRUG DEPENDENCE
     Route: 060
     Dates: start: 2008
  2. SUBOXONE FILM [Suspect]
     Indication: DRUG DEPENDENCE
     Dosage: SUBOXONE FILM
     Route: 060
     Dates: start: 2010
  3. METFORMIN [Concomitant]
     Indication: DIABETES MELLITUS
     Dosage: UNKNOWN DOSAGE DETAILS
     Route: 065
  4. CYMBALTA [Concomitant]
     Indication: DEPRESSION SUICIDAL
     Dosage: UNKNOWN DOSAGE DETAILS
     Route: 065

REACTIONS (6)
  - Brain neoplasm benign [Recovered/Resolved]
  - Neuropathy peripheral [Not Recovered/Not Resolved]
  - Fall [Not Recovered/Not Resolved]
  - Balance disorder [Not Recovered/Not Resolved]
  - Dysuria [Not Recovered/Not Resolved]
  - Confusional state [Not Recovered/Not Resolved]
